FAERS Safety Report 6967193-3 (Version None)
Quarter: 2010Q3

REPORT INFORMATION
  Report Type: 
  Country: None (occurrence: None)
  Receive Date: 20100907
  Receipt Date: 20100825
  Transmission Date: 20110219
  Serious: Yes (Other)
  Sender: FDA-Public Use
  Company Number: DE-JNJFOC-20100808299

PATIENT
  Sex: Male
  Weight: 69.3 kg

DRUGS (1)
  1. RISPERDAL [Suspect]
     Indication: PRODUCT USED FOR UNKNOWN INDICATION
     Dosage: 2-6 MG
     Route: 048

REACTIONS (3)
  - HALLUCINATION, AUDITORY [None]
  - SUICIDAL IDEATION [None]
  - THINKING ABNORMAL [None]
